FAERS Safety Report 15742860 (Version 2)
Quarter: 2019Q1

REPORT INFORMATION
  Report Type: Spontaneous
  Country: AU (occurrence: AU)
  Receive Date: 20181219
  Receipt Date: 20190116
  Transmission Date: 20190417
  Serious: Yes (Other)
  Sender: FDA-Public Use
  Company Number: AU-ROCHE-2232296

PATIENT
  Age: 29 Year

DRUGS (1)
  1. MABTHERA [Suspect]
     Active Substance: RITUXIMAB
     Indication: POLYARTERITIS NODOSA
     Route: 065

REACTIONS (3)
  - Off label use [Unknown]
  - Polyarteritis nodosa [Unknown]
  - Intentional product use issue [Unknown]

NARRATIVE: CASE EVENT DATE: 201804
